FAERS Safety Report 25518852 (Version 2)
Quarter: 2025Q3

REPORT INFORMATION
  Report Type: Report from Study
  Country: US (occurrence: US)
  Receive Date: 20250704
  Receipt Date: 20250805
  Transmission Date: 20251021
  Serious: Yes (Other)
  Sender: ACADIA PHARMACEUTICALS
  Company Number: US-ACADIA PHARMACEUTICALS INC.-ACA-2025-PIM-007809

PATIENT
  Sex: Male
  Weight: 67.1 kg

DRUGS (15)
  1. NUPLAZID [Suspect]
     Active Substance: PIMAVANSERIN TARTRATE
     Indication: Product used for unknown indication
     Dosage: 34 MILLIGRAM, QD
     Route: 065
     Dates: start: 202409
  2. NUPLAZID [Suspect]
     Active Substance: PIMAVANSERIN TARTRATE
     Indication: Dementia with Lewy bodies
     Dosage: 10 MILLIGRAM, QD
     Route: 048
     Dates: start: 20250311
  3. NUPLAZID [Suspect]
     Active Substance: PIMAVANSERIN TARTRATE
     Indication: Cognitive disorder
  4. GABAPENTIN [Suspect]
     Active Substance: GABAPENTIN
     Indication: Product used for unknown indication
     Dosage: 300 MILLIGRAM, TID
     Route: 048
     Dates: start: 20241216
  5. ATORVASTATIN CALCIUM [Concomitant]
     Active Substance: ATORVASTATIN CALCIUM
     Dosage: 40 MILLIGRAM, QD
     Route: 048
     Dates: start: 20241216
  6. FAMOTIDINE [Concomitant]
     Active Substance: FAMOTIDINE
     Dosage: 40 MILLIGRAM, QD
     Route: 048
     Dates: start: 20240802
  7. FLUOXETINE HYDROCHLORIDE [Concomitant]
     Active Substance: FLUOXETINE HYDROCHLORIDE
     Dosage: 40 MILLIGRAM, QD, IN MORNING
     Route: 048
     Dates: start: 20250414
  8. LAMOTRIGINE [Concomitant]
     Active Substance: LAMOTRIGINE
     Dosage: 400 MILLIGRAM, QD
     Route: 048
     Dates: start: 20241010
  9. METFORMIN HYDROCHLORIDE [Concomitant]
     Active Substance: METFORMIN HYDROCHLORIDE
     Dosage: 500 MILLIGRAM, BID (1 TABLET IN MORNING AND 1 TABLET IN EVENING)
     Route: 048
     Dates: start: 20250319, end: 20250619
  10. NYSTATIN [Concomitant]
     Active Substance: NYSTATIN
     Dosage: 5 MILLILITER, QID (500,000 UNITS TOTAL)
     Route: 048
     Dates: start: 20240923
  11. OLMESARTAN MEDOXOMIL [Concomitant]
     Active Substance: OLMESARTAN MEDOXOMIL
     Dosage: 40 MILLIGRAM, QD
     Route: 048
     Dates: start: 20240730
  12. PANTOPRAZOLE SODIUM [Concomitant]
     Active Substance: PANTOPRAZOLE SODIUM
     Dosage: 40 MILLIGRAM, QD
     Route: 048
     Dates: start: 20250314
  13. TAMSULOSIN HYDROCHLORIDE [Concomitant]
     Active Substance: TAMSULOSIN HYDROCHLORIDE
     Dosage: 0.8 MILLIGRAM, QD AT BEDTIME
     Route: 048
     Dates: start: 20250311
  14. BUSPIRONE HCL [Concomitant]
     Active Substance: BUSPIRONE HYDROCHLORIDE
     Dosage: 10 MILLIGRAM, BID
     Route: 048
     Dates: start: 20250414, end: 20250514
  15. HALDOL [Concomitant]
     Active Substance: HALOPERIDOL

REACTIONS (13)
  - Tardive dyskinesia [Unknown]
  - Hallucination, visual [Recovered/Resolved]
  - Hallucination [Unknown]
  - Dental operation [Unknown]
  - Procedural pain [Unknown]
  - Dyskinesia [Unknown]
  - Grunting [Unknown]
  - Grimacing [Unknown]
  - Anxiety [Unknown]
  - Obsessive-compulsive disorder [Unknown]
  - Tremor [Unknown]
  - Product use in unapproved indication [Unknown]
  - Product use issue [Unknown]
